FAERS Safety Report 21741986 (Version 1)
Quarter: 2022Q4

REPORT INFORMATION
  Report Type: Spontaneous
  Country: GB (occurrence: GB)
  Receive Date: 20221216
  Receipt Date: 20221216
  Transmission Date: 20230112
  Serious: Yes (Disabling, Other)
  Sender: FDA-Public Use
  Company Number: None

PATIENT
  Age: 59 Year
  Sex: Male
  Weight: 85 kg

DRUGS (7)
  1. AMLODIPINE [Suspect]
     Active Substance: AMLODIPINE BESYLATE
     Indication: Product used for unknown indication
     Dosage: 5 MILLIGRAM DAILY; UNIT DOSE : 5 MG, FREQUENCY ; 1 , FREQUENCY TIME : 1 DAYS, THERAPY END DATE : NOT
     Route: 065
     Dates: start: 20220909
  2. AMOXICILLIN [Concomitant]
     Active Substance: AMOXICILLIN
     Indication: Product used for unknown indication
     Dosage: 3 DOSAGE FORMS DAILY;  UNIT DOSE : 1 DOSAGE FORMS, FREQUENCY ; 3 , FREQUENCY TIME : 1 DAYS, THERAPY
     Dates: start: 20221010, end: 20221015
  3. ATORVASTATIN [Concomitant]
     Active Substance: ATORVASTATIN
     Indication: Blood cholesterol increased
     Dosage: 1 DOSAGE FORMS DAILY; AT NIGHT,  UNIT DOSE : 1 DOSAGE FORMS, FREQUENCY ; 1 , FREQUENCY TIME : 1 DAYS
     Dates: start: 20221014
  4. DOXYCYCLINE [Concomitant]
     Active Substance: DOXYCYCLINE
     Indication: Product used for unknown indication
     Dosage: TWO NOW THEN ONE DAILY, DURATION : 7 DAYS
     Dates: start: 20221018, end: 20221025
  5. NEBIVOLOL [Concomitant]
     Active Substance: NEBIVOLOL
     Indication: Product used for unknown indication
     Dosage: 1 DOSAGE FORMS DAILY;  UNIT DOSE : 1 DOSAGE FORMS, FREQUENCY ; 1 , FREQUENCY TIME : 1 DAYS
     Dates: start: 20211129
  6. SERETIDE [Concomitant]
     Active Substance: FLUTICASONE PROPIONATE\SALMETEROL XINAFOATE
     Indication: Product used for unknown indication
     Dosage: 2 DOSAGE FORMS DAILY;  UNIT DOSE : 1 DOSAGE FORMS, FREQUENCY ; 2 , FREQUENCY TIME : 1 DAYS
     Route: 055
     Dates: start: 20211129
  7. VENTOLIN [Concomitant]
     Active Substance: ALBUTEROL SULFATE
     Indication: Product used for unknown indication
     Dosage: TO RELIEVE THE SYMPTOMS,  UNIT DOSE : 2 DOSAGE FORMS, THERAPY DURATION : 28 DAYS
     Route: 055
     Dates: start: 20220909, end: 20221007

REACTIONS (3)
  - Bronchospasm [Unknown]
  - Wheezing [Recovered/Resolved]
  - Myalgia [Recovered/Resolved]

NARRATIVE: CASE EVENT DATE: 20221107
